FAERS Safety Report 5799562-1 (Version None)
Quarter: 2008Q3

REPORT INFORMATION
  Report Type: 
  Country: None (occurrence: None)
  Receive Date: 20080701
  Receipt Date: 20080625
  Transmission Date: 20090109
  Serious: Yes (Hospitalization)
  Sender: FDA-Public Use
  Company Number: C-08-0016

PATIENT
  Age: 11 Month
  Sex: Male
  Weight: 8.1647 kg

DRUGS (1)
  1. METOCLOPRAMIDE ORAL [Suspect]
     Indication: GASTROOESOPHAGEAL REFLUX DISEASE
     Dosage: 1ML ORALLY 4 TIMES/DAY
     Dates: start: 20080317, end: 20080328

REACTIONS (10)
  - ACCIDENTAL OVERDOSE [None]
  - ANOREXIA [None]
  - DEHYDRATION [None]
  - DIARRHOEA [None]
  - DRUG INTOLERANCE [None]
  - LETHARGY [None]
  - METABOLIC DISORDER [None]
  - PHARMACEUTICAL PRODUCT COMPLAINT [None]
  - VIRAL INFECTION [None]
  - VOMITING [None]
